FAERS Safety Report 10167413 (Version 1)
Quarter: 2014Q2

REPORT INFORMATION
  Report Type: Spontaneous
  Country: US (occurrence: US)
  Receive Date: 20140512
  Receipt Date: 20140512
  Transmission Date: 20141212
  Serious: Yes (Other)
  Sender: FDA-Public Use
  Company Number: US-JNJFOC-20140503051

PATIENT
  Age: 62 Year
  Sex: Male

DRUGS (7)
  1. INVOKANA [Suspect]
     Indication: DIABETES MELLITUS
     Route: 048
     Dates: start: 201403, end: 20140317
  2. INVOKANA [Suspect]
     Indication: DIABETES MELLITUS
     Route: 048
     Dates: start: 201311, end: 201403
  3. LISINOPRIL [Suspect]
     Indication: PRODUCT USED FOR UNKNOWN INDICATION
     Dates: end: 201403
  4. GLYBURIDE [Concomitant]
     Indication: DIABETES MELLITUS
  5. PRILOSEC [Concomitant]
  6. METFORMIN [Concomitant]
  7. LIPITOR [Concomitant]

REACTIONS (2)
  - Weight decreased [Unknown]
  - Blood potassium increased [Recovered/Resolved]
